FAERS Safety Report 9528386 (Version 5)
Quarter: 2014Q1

REPORT INFORMATION
  Report Type: Spontaneous
  Country: US (occurrence: US)
  Receive Date: 20130917
  Receipt Date: 20140211
  Transmission Date: 20141002
  Serious: Yes (Other)
  Sender: FDA-Public Use
  Company Number: US-PFIZER INC-2013262828

PATIENT
  Sex: Female

DRUGS (1)
  1. DETROL LA [Suspect]
     Dosage: UNSPECIFIED DOSE, DAILY
     Dates: start: 20130911

REACTIONS (3)
  - Nasopharyngitis [Unknown]
  - Cough [Unknown]
  - Hypoacusis [Unknown]
